FAERS Safety Report 4286318-4 (Version None)
Quarter: 2004Q1

REPORT INFORMATION
  Report Type: 
  Country: None (occurrence: None)
  Receive Date: 20040116
  Receipt Date: 20030730
  Transmission Date: 20041129
  Serious: Yes (Other)
  Sender: FDA-Public Use
  Company Number: 343875

PATIENT
  Sex: Female

DRUGS (1)
  1. VERSED [Suspect]

REACTIONS (1)
  - RESPIRATORY DEPRESSION [None]
